FAERS Safety Report 9231878 (Version 1)
Quarter: 2013Q2

REPORT INFORMATION
  Report Type: Spontaneous
  Country: JP (occurrence: JP)
  Receive Date: 20130415
  Receipt Date: 20130415
  Transmission Date: 20140414
  Serious: Yes (Hospitalization)
  Sender: FDA-Public Use
  Company Number: PHHY2013JP011276

PATIENT
  Age: 66 Year
  Sex: Male
  Weight: 55 kg

DRUGS (8)
  1. EQUA [Suspect]
     Indication: TYPE 2 DIABETES MELLITUS
     Dosage: 100 MG, DAILY
     Route: 048
     Dates: start: 201211, end: 20130128
  2. PURSENNID [Suspect]
     Indication: CONSTIPATION
     Dosage: UNK UKN, PRN
     Route: 048
     Dates: start: 20130107, end: 20130128
  3. MAGNESIUM OXIDE [Suspect]
     Indication: CONSTIPATION
     Dosage: 2 G, DAILY
     Route: 048
     Dates: start: 201211, end: 20130107
  4. MAGNESIUM OXIDE [Suspect]
     Dosage: 0.5 G, DAILY
     Route: 048
     Dates: start: 20130108
  5. METGLUCO [Concomitant]
     Indication: TYPE 2 DIABETES MELLITUS
     Dosage: 250 MG, UNK
     Route: 048
     Dates: start: 20130129, end: 20130221
  6. LIDOMEX [Concomitant]
     Indication: ECZEMA NUMMULAR
     Dosage: UNK UKN, UNK
     Route: 048
     Dates: start: 20130121, end: 20130128
  7. HIRUDOID [Concomitant]
     Indication: ECZEMA NUMMULAR
     Dosage: UNK UKN, UNK
     Dates: start: 20130121, end: 20130128
  8. ANTEBATE [Concomitant]
     Indication: ECZEMA NUMMULAR
     Dosage: UNK UKN, UNK
     Dates: start: 20130121, end: 20130128

REACTIONS (8)
  - Diabetes mellitus inadequate control [Unknown]
  - Drug eruption [Recovered/Resolved]
  - Scar [Recovering/Resolving]
  - Erythema [Recovered/Resolved]
  - Skin lesion [Unknown]
  - Skin disorder [Recovered/Resolved]
  - Rash [Recovered/Resolved]
  - Pruritus [Recovered/Resolved]
